FAERS Safety Report 19686513 (Version 1)
Quarter: 2021Q3

REPORT INFORMATION
  Report Type: Spontaneous
  Country: FR (occurrence: FR)
  Receive Date: 20210811
  Receipt Date: 20210811
  Transmission Date: 20211014
  Serious: Yes (Hospitalization)
  Sender: FDA-Public Use
  Company Number: FR-009507513-2108FRA001186

PATIENT
  Age: 61 Year
  Sex: Male
  Weight: 44 kg

DRUGS (23)
  1. ALIMTA [Suspect]
     Active Substance: PEMETREXED DISODIUM
     Indication: LUNG ADENOCARCINOMA STAGE IV
     Dosage: CURE 1,
     Dates: start: 20210409
  2. OXYCONTIN [Concomitant]
     Active Substance: OXYCODONE HYDROCHLORIDE
     Dosage: UNK
  3. ALIMTA [Suspect]
     Active Substance: PEMETREXED DISODIUM
     Dosage: CURE 2
     Dates: start: 20210430
  4. RIFATER [Suspect]
     Active Substance: ISONIAZID\PYRAZINAMIDE\RIFAMPIN
     Indication: TUBERCULOSIS
     Dosage: 4 DOSAGE FORM, QD
     Dates: start: 20210420, end: 20210515
  5. METFORMIN [Concomitant]
     Active Substance: METFORMIN HYDROCHLORIDE
  6. OXYNORM [Concomitant]
     Active Substance: OXYCODONE HYDROCHLORIDE
  7. PEMBROLIZUMAB. [Suspect]
     Active Substance: PEMBROLIZUMAB
     Indication: LUNG ADENOCARCINOMA STAGE IV
     Dosage: CURE 3
     Dates: start: 20210625
  8. PEMBROLIZUMAB. [Suspect]
     Active Substance: PEMBROLIZUMAB
     Dosage: CURE 1;
     Dates: start: 20210409
  9. DEXAMBUTOL [Concomitant]
     Active Substance: ETHAMBUTOL HYDROCHLORIDE
     Indication: TUBERCULOSIS
     Dosage: 500 MILLIGRAM, QD
     Dates: start: 20210420, end: 20210515
  10. CARBOPLATINE [Suspect]
     Active Substance: CARBOPLATIN
     Dosage: CURE 1
     Dates: start: 20210409
  11. CARBOPLATINE [Suspect]
     Active Substance: CARBOPLATIN
     Dosage: CURE 3
     Dates: start: 20210625
  12. VITAMIN B6 [Concomitant]
     Active Substance: PYRIDOXINE HYDROCHLORIDE
  13. GELTIM [Concomitant]
     Active Substance: TIMOLOL MALEATE
     Dosage: UNK
  14. ONDANSETRON [Concomitant]
     Active Substance: ONDANSETRON
  15. ATORVASTATIN [Concomitant]
     Active Substance: ATORVASTATIN
  16. RIFATER [Suspect]
     Active Substance: ISONIAZID\PYRAZINAMIDE\RIFAMPIN
     Dosage: 4 DOSAGE FORM, QD
     Dates: start: 20210630, end: 20210715
  17. CARBOPLATINE [Suspect]
     Active Substance: CARBOPLATIN
     Indication: LUNG ADENOCARCINOMA STAGE IV
     Dosage: CURE 2
     Dates: start: 20210430
  18. SALBUTAMOL [Concomitant]
     Active Substance: ALBUTEROL
     Dosage: UNK
  19. MODERNA COVID?19 VACCINE [Concomitant]
     Active Substance: CX-024414
     Dosage: UNK; STRENGTH: 0.20 MG/ML
  20. PARACETAMOL [Concomitant]
     Active Substance: ACETAMINOPHEN
     Dosage: UNK
  21. MOVICOL PLAIN [Concomitant]
     Active Substance: POLYETHYLENE GLYCOL 3350\POTASSIUM CHLORIDE\SODIUM BICARBONATE\SODIUM CHLORIDE
  22. PEMBROLIZUMAB. [Suspect]
     Active Substance: PEMBROLIZUMAB
     Dosage: CURE 2
     Dates: start: 20210430
  23. ALIMTA [Suspect]
     Active Substance: PEMETREXED DISODIUM
     Dosage: CURE 3; POWDER FOR SOLUTION TO DILUTE FOR  INFUSION
     Dates: start: 20210625

REACTIONS (1)
  - Mixed liver injury [Recovering/Resolving]

NARRATIVE: CASE EVENT DATE: 20210514
